FAERS Safety Report 6040187-0 (Version None)
Quarter: 2009Q1

REPORT INFORMATION
  Report Type: 
  Country: None (occurrence: None)
  Receive Date: 20090116
  Receipt Date: 20080703
  Transmission Date: 20090719
  Serious: No
  Sender: FDA-Public Use
  Company Number: US-BRISTOL-MYERS SQUIBB COMPANY-14033153

PATIENT
  Age: 64 Year
  Sex: Female
  Weight: 68 kg

DRUGS (4)
  1. ABILIFY [Suspect]
     Indication: BIPOLAR DISORDER
     Route: 048
     Dates: start: 20070101, end: 20070101
  2. DEPAKOTE [Concomitant]
     Route: 048
  3. EFFEXOR [Concomitant]
     Route: 048
  4. KLONOPIN [Concomitant]
     Route: 048

REACTIONS (9)
  - ANXIETY [None]
  - ASTHENIA [None]
  - DYSPNOEA [None]
  - FALL [None]
  - INSOMNIA [None]
  - LETHARGY [None]
  - LIMB INJURY [None]
  - MALAISE [None]
  - NAUSEA [None]
